FAERS Safety Report 10163330 (Version 1)
Quarter: 2014Q2

REPORT INFORMATION
  Report Type: Spontaneous
  Country: DE (occurrence: DE)
  Receive Date: 20140509
  Receipt Date: 20140509
  Transmission Date: 20141212
  Serious: Yes (Hospitalization)
  Sender: FDA-Public Use
  Company Number: DE-BRISTOL-MYERS SQUIBB COMPANY-20695649

PATIENT
  Age: 48 Year
  Sex: Male

DRUGS (5)
  1. COUMADIN [Suspect]
     Indication: THROMBOSIS
     Dosage: DOSE: 2 X 5 MG EVERY NIGHT?2.5 TABLETS ON SUNDAYS
  2. TILIDINE [Concomitant]
  3. PANTOPRAZOLE [Concomitant]
  4. MAGNESIUM [Concomitant]
  5. IBUPROFEN [Concomitant]

REACTIONS (2)
  - Blindness [Unknown]
  - Back pain [Unknown]
